FAERS Safety Report 13012952 (Version 1)
Quarter: 2016Q4

REPORT INFORMATION
  Report Type: Spontaneous
  Country: GB (occurrence: GB)
  Receive Date: 20161209
  Receipt Date: 20161209
  Transmission Date: 20170207
  Serious: Yes (Disabling)
  Sender: FDA-Public Use
  Company Number: GB-BAYER-2016-231800

PATIENT
  Age: 16 Year
  Sex: Female
  Weight: 46 kg

DRUGS (9)
  1. NAPROXEN SODIUM ({= 220 MG) [Suspect]
     Active Substance: NAPROXEN SODIUM
     Dosage: UNK
     Dates: start: 20161006
  2. HYDROCORTISONE. [Concomitant]
     Active Substance: HYDROCORTISONE
     Dosage: 2 ML, UNK
     Dates: start: 20160923, end: 20160924
  3. LAXIDO [Concomitant]
     Active Substance: POLYETHYLENE GLYCOL 3350\POTASSIUM CHLORIDE\SODIUM BICARBONATE\SODIUM CHLORIDE
     Dosage: 2 DF, QD
     Dates: start: 20140103
  4. TRANEXAMIC ACID. [Concomitant]
     Active Substance: TRANEXAMIC ACID
     Dosage: 2 DF, TID
     Dates: start: 20130828
  5. SODIUM PICOSULFATE [Concomitant]
     Active Substance: SODIUM PICOSULFATE
     Dosage: 2.5 ML, QD
     Dates: start: 20140103, end: 20160924
  6. CETIRIZINE [Concomitant]
     Active Substance: CETIRIZINE HYDROCHLORIDE
     Dosage: 1 DF, QD
     Dates: start: 20150705
  7. DOCUSATE SODIUM. [Concomitant]
     Active Substance: DOCUSATE SODIUM
     Dosage: 2 DF, QD
     Dates: start: 20140514
  8. DUAC [Concomitant]
     Active Substance: BENZOYL PEROXIDE\CLINDAMYCIN PHOSPHATE
     Dosage: 1 DF, QD
     Dates: start: 20140113, end: 20160924
  9. EPIPEN [Concomitant]
     Active Substance: EPINEPHRINE
     Dosage: UNK
     Dates: start: 20161003

REACTIONS (4)
  - Hypotension [Unknown]
  - Urticaria [Recovered/Resolved]
  - Hypersensitivity [Unknown]
  - Lip swelling [Recovered/Resolved]

NARRATIVE: CASE EVENT DATE: 20161025
